FAERS Safety Report 12749366 (Version 2)
Quarter: 2017Q3

REPORT INFORMATION
  Report Type: Spontaneous
  Country: US (occurrence: US)
  Receive Date: 20160915
  Receipt Date: 20170914
  Transmission Date: 20171127
  Serious: No
  Sender: FDA-Public Use
  Company Number: US-ASTELLAS-2016US014634

PATIENT
  Age: 91 Year
  Sex: Male

DRUGS (3)
  1. XTANDI [Suspect]
     Active Substance: ENZALUTAMIDE
     Route: 048
  2. XTANDI [Suspect]
     Active Substance: ENZALUTAMIDE
     Route: 048
     Dates: start: 201606
  3. XTANDI [Suspect]
     Active Substance: ENZALUTAMIDE
     Indication: METASTASES TO BONE
     Route: 048
     Dates: start: 201605

REACTIONS (20)
  - Balance disorder [Unknown]
  - Blood glucose increased [Unknown]
  - Dizziness [Unknown]
  - Diarrhoea [Unknown]
  - Constipation [Unknown]
  - Drug intolerance [Unknown]
  - Vomiting [Unknown]
  - Abnormal dreams [Unknown]
  - Movement disorder [Recovering/Resolving]
  - Dizziness [Unknown]
  - Urinary tract infection [Unknown]
  - Off label use [Unknown]
  - Pain in jaw [Recovering/Resolving]
  - Feeling abnormal [Not Recovered/Not Resolved]
  - Asthenia [Not Recovered/Not Resolved]
  - Fatigue [Not Recovered/Not Resolved]
  - Blood pressure increased [Not Recovered/Not Resolved]
  - Nightmare [Recovering/Resolving]
  - Abdominal discomfort [Unknown]
  - Fall [Unknown]

NARRATIVE: CASE EVENT DATE: 201609
